FAERS Safety Report 25730266 (Version 3)
Quarter: 2025Q4

REPORT INFORMATION
  Report Type: Spontaneous
  Country: US (occurrence: None)
  Receive Date: 20250827
  Receipt Date: 20251023
  Transmission Date: 20260118
  Serious: Yes (Disabling, Other)
  Sender: UCB
  Company Number: US-UCBSA-2025029676

PATIENT
  Weight: 112 kg

DRUGS (1)
  1. RYSTIGGO [Suspect]
     Active Substance: ROZANOLIXIZUMAB-NOLI
     Indication: Myasthenia gravis
     Dosage: UNK

REACTIONS (5)
  - Myasthenia gravis [Not Recovered/Not Resolved]
  - Upper respiratory tract infection [Not Recovered/Not Resolved]
  - Oropharyngeal pain [Not Recovered/Not Resolved]
  - Cough [Not Recovered/Not Resolved]
  - Therapeutic response shortened [Unknown]
